FAERS Safety Report 5599269-X (Version None)
Quarter: 2008Q1

REPORT INFORMATION
  Report Type: 
  Country: None (occurrence: None)
  Receive Date: 20080117
  Receipt Date: 20080102
  Transmission Date: 20080703
  Serious: Yes (Hospitalization)
  Sender: FDA-Public Use
  Company Number: 2008S1000001

PATIENT
  Age: 43 Year
  Sex: Female

DRUGS (4)
  1. AZASAN [Suspect]
     Indication: COLITIS ULCERATIVE
     Dosage: 100 MG; QD;
  2. MESALAMINE [Concomitant]
  3. PREDNISONE TAB [Concomitant]
  4. UNSPECIFIED ANTIBIOTICS [Concomitant]

REACTIONS (7)
  - COUGH [None]
  - CYANOSIS [None]
  - DYSPNOEA [None]
  - HYPOXIA [None]
  - LOBAR PNEUMONIA [None]
  - LUNG CONSOLIDATION [None]
  - MALAISE [None]
